FAERS Safety Report 8807616 (Version 4)
Quarter: 2012Q4

REPORT INFORMATION
  Report Type: 
  Country: US (occurrence: US)
  Receive Date: 20120925
  Receipt Date: 20121214
  Transmission Date: 20130627
  Serious: Yes (Other)
  Sender: FDA-Public Use
  Company Number: US-PFIZER INC-2012234397

PATIENT
  Age: 84 Year
  Sex: Female

DRUGS (16)
  1. CALTRATE WITH VITAMIN D [Suspect]
     Dosage: 2 chewable tablets in morning
  2. CENTRUM SILVER [Interacting]
     Dosage: in the morning
  3. HYDROCHLOROTHIAZIDE/SPIRONOLACTONE [Interacting]
     Dosage: one tablet (25/25) in the AM
  4. CENTRUM SILVER [Suspect]
     Dosage: UNK
  5. METOPROLOL [Interacting]
     Dosage: 12.5 mg (half of 25 mg) in the PM
  6. METOPROLOL [Interacting]
     Dosage: 12 mg, 1x/day
  7. OMEPRAZOLE [Interacting]
     Dosage: 20 mg, 1x/day (o/c) in the AM
  8. OMEGA-3 [Interacting]
     Dosage: one capsule in the AM
  9. VITAMIN B COMPLEX [Interacting]
     Dosage: in the AM
  10. BIOTIN [Interacting]
     Dosage: 5000 ug, 1x/day (AM)
  11. BIOTIN [Interacting]
     Dosage: 500 ug, UNK
  12. COLACE [Interacting]
     Dosage: 100 mg, 2x/day in the AM and PM
  13. PRAVASTATIN SODIUM [Interacting]
     Dosage: one tablet in the PM
  14. ASPIRIN ^BAYER^ [Interacting]
     Dosage: one ^325^ in the PM
  15. METAMUCIL [Interacting]
     Dosage: 3 capsules in the PM
  16. PRUNE [Interacting]
     Dosage: UNK

REACTIONS (5)
  - Drug interaction [Unknown]
  - Loss of consciousness [Unknown]
  - Blindness [Unknown]
  - Impaired driving ability [Unknown]
  - Road traffic accident [None]
